FAERS Safety Report 8895490 (Version 2)
Quarter: 2012Q4

REPORT INFORMATION
  Report Type: 
  Country: GB (occurrence: GB)
  Receive Date: 20121108
  Receipt Date: 20121227
  Transmission Date: 20130627
  Serious: Yes (Hospitalization, Other)
  Sender: FDA-Public Use
  Company Number: GB-MYLANLABS-2012S1022229

PATIENT
  Age: 48 Year
  Sex: Male

DRUGS (6)
  1. AMLODIPINE [Suspect]
     Indication: HYPERTENSION
     Route: 048
     Dates: start: 200901
  2. TEGRETOL [Suspect]
     Indication: EPILEPSY
     Route: 048
     Dates: start: 200606
  3. LANSOPRAZOLE [Concomitant]
     Indication: DYSPEPSIA
     Route: 048
     Dates: start: 20030203
  4. ANTACID /00108001/ [Concomitant]
     Indication: PRODUCT USED FOR UNKNOWN INDICATION
  5. ASPIRIN [Concomitant]
     Indication: CEREBROVASCULAR ACCIDENT
     Route: 048
  6. ATORVASTATIN [Concomitant]
     Indication: CEREBROVASCULAR ACCIDENT
     Route: 048

REACTIONS (5)
  - Drug interaction [Unknown]
  - Cerebrovascular accident [Recovering/Resolving]
  - Hypertension [Not Recovered/Not Resolved]
  - Basal ganglia infarction [Unknown]
  - Fatigue [Unknown]
